FAERS Safety Report 9228016 (Version 1)
Quarter: 2013Q1

REPORT INFORMATION
  Report Type: Spontaneous
  Country: US (occurrence: None)
  Receive Date: 20121023
  Receipt Date: 20121023
  Transmission Date: 20140127
  Serious: Yes (Other)
  Sender: FDA-Public Use
  Company Number: PHEH2012US014491

PATIENT
  Age: 57 Year
  Sex: Female

DRUGS (3)
  1. VIVELLE DOT ( ESTRADIOL) TRANS-THERAPEUTIC-SYSTEM [Suspect]
     Indication: MENOPAUSE
     Route: 062
  2. OMEPRAZOLE ( OMEPRAZOLE) [Concomitant]
  3. LISINOPRIL ( LISINOPRIL) [Concomitant]

REACTIONS (4)
  - Dizziness [None]
  - Feeling abnormal [None]
  - Application site reaction [None]
  - Hypersensitivity [None]
